FAERS Safety Report 8535719-4 (Version None)
Quarter: 2012Q3

REPORT INFORMATION
  Report Type: 
  Country: None (occurrence: None)
  Receive Date: 20120725
  Receipt Date: 20120720
  Transmission Date: 20120928
  Serious: No
  Sender: FDA-Public Use
  Company Number: US-PFIZER INC-2012010504

PATIENT
  Sex: Male

DRUGS (1)
  1. SUTENT [Suspect]
     Indication: RENAL CANCER
     Dosage: 50 MG, 1X/DAY

REACTIONS (5)
  - FALL [None]
  - CARDIAC DISORDER [None]
  - PAIN IN EXTREMITY [None]
  - DISEASE PROGRESSION [None]
  - RENAL CANCER [None]
